FAERS Safety Report 9839435 (Version 1)
Quarter: 2014Q1

REPORT INFORMATION
  Report Type: Spontaneous
  Country: US (occurrence: US)
  Receive Date: 20140124
  Receipt Date: 20140124
  Transmission Date: 20141002
  Serious: No
  Sender: FDA-Public Use
  Company Number: US-B.I. PHARMACEUTICALS,INC./RIDGEFIELD-2014-BI-01783BP

PATIENT
  Age: 39 Year
  Sex: Female
  Weight: 53.6 kg

DRUGS (4)
  1. SPIRIVA [Suspect]
     Indication: ASTHMA
     Dosage: 18 MCG
     Route: 055
     Dates: start: 2007
  2. SPIRIVA [Suspect]
     Indication: BRONCHIECTASIS
  3. ADVAIR [Concomitant]
     Dosage: STRENGTH: 250/50; DAILY DOSE: 500/100
     Route: 055
  4. XOPENEX [Concomitant]
     Route: 055

REACTIONS (2)
  - Off label use [Unknown]
  - Pneumonia [Not Recovered/Not Resolved]
